FAERS Safety Report 15491040 (Version 1)
Quarter: 2018Q4

REPORT INFORMATION
  Report Type: Spontaneous
  Country: US (occurrence: US)
  Receive Date: 20181012
  Receipt Date: 20181012
  Transmission Date: 20190205
  Serious: No
  Sender: FDA-Public Use
  Company Number: US-BION-007286

PATIENT
  Sex: Female

DRUGS (1)
  1. PROGESTERONE 200 MG CAPSULE BION PHARMA [Suspect]
     Active Substance: PROGESTERONE
     Indication: PROGESTERONE DECREASED
     Dosage: STRENGTH: 200 MG

REACTIONS (5)
  - Contraindicated product administered [Not Recovered/Not Resolved]
  - Maternal exposure during pregnancy [Unknown]
  - Contraindicated product prescribed [Not Recovered/Not Resolved]
  - Vaginal haemorrhage [Unknown]
  - Product use in unapproved indication [Not Recovered/Not Resolved]
